FAERS Safety Report 11289143 (Version 1)
Quarter: 2015Q3

REPORT INFORMATION
  Report Type: Report from Study
  Country: TR (occurrence: TR)
  Receive Date: 20150721
  Receipt Date: 20150721
  Transmission Date: 20151125
  Serious: Yes (Other)
  Sender: FDA-Public Use
  Company Number: PHHY2015TR083920

PATIENT
  Sex: Male
  Weight: 30 kg

DRUGS (2)
  1. CALCIUM [Concomitant]
     Active Substance: CALCIUM
     Indication: PRODUCT USED FOR UNKNOWN INDICATION
     Route: 065
  2. SOMATROPIN [Suspect]
     Active Substance: SOMATROPIN
     Indication: GROWTH HORMONE DEFICIENCY
     Dosage: 0.8 MG, UNK (0.8 MG/DAY FOR 6 DAYS AND 0.9 MG/DAY FOR 1 DAY)
     Route: 058
     Dates: start: 20140709, end: 20150618

REACTIONS (1)
  - Bone disorder [Unknown]
